FAERS Safety Report 19772249 (Version 1)
Quarter: 2021Q3

REPORT INFORMATION
  Report Type: Spontaneous
  Country: JP (occurrence: JP)
  Receive Date: 20210901
  Receipt Date: 20210901
  Transmission Date: 20211014
  Serious: Yes (Death)
  Sender: FDA-Public Use
  Company Number: JP-PFIZER INC-2020301184

PATIENT
  Age: 66 Year
  Sex: Male

DRUGS (3)
  1. BAVENCIO [Suspect]
     Active Substance: AVELUMAB
     Dosage: 580 MG, CYCLIC (580 MG/DAY, CYCLIC)
     Route: 042
     Dates: start: 20200730, end: 202101
  2. PREDNISOLONE. [Concomitant]
     Active Substance: PREDNISOLONE
     Dosage: 5 MG, DAILY
     Route: 048
  3. INLYTA [Suspect]
     Active Substance: AXITINIB
     Dosage: 10 MG, DAILY
     Route: 048
     Dates: start: 20200730, end: 202101

REACTIONS (2)
  - Emphysema [Fatal]
  - Dysphonia [Recovered/Resolved]

NARRATIVE: CASE EVENT DATE: 20200730
